FAERS Safety Report 23149017 (Version 1)
Quarter: 2023Q4

REPORT INFORMATION
  Report Type: Spontaneous
  Country: BE (occurrence: BE)
  Receive Date: 20231106
  Receipt Date: 20231106
  Transmission Date: 20240110
  Serious: Yes (Hospitalization, Other)
  Sender: FDA-Public Use
  Company Number: BE-SA-SAC20230626000718

PATIENT
  Age: 77 Year
  Sex: Male
  Weight: 100 kg

DRUGS (59)
  1. DEXAMETHASONE [Suspect]
     Active Substance: DEXAMETHASONE
     Dosage: 10 MG, QW
     Route: 065
     Dates: start: 20230510, end: 20230606
  2. DEXAMETHASONE [Suspect]
     Active Substance: DEXAMETHASONE
     Dosage: 10 MG, QW
     Route: 065
     Dates: start: 20230607, end: 20230620
  3. DEXAMETHASONE [Suspect]
     Active Substance: DEXAMETHASONE
     Dosage: 20 MG, QW
     Route: 065
     Dates: start: 20230117, end: 20230130
  4. DEXAMETHASONE [Suspect]
     Active Substance: DEXAMETHASONE
     Dosage: 20 MG, QW
     Route: 065
     Dates: start: 20230215, end: 20230315
  5. DEXAMETHASONE [Suspect]
     Active Substance: DEXAMETHASONE
     Dosage: 20 MG, QW
     Route: 065
     Dates: start: 20230315, end: 20230411
  6. DEXAMETHASONE [Suspect]
     Active Substance: DEXAMETHASONE
     Dosage: 40 MG, QW
     Route: 065
     Dates: start: 20221116
  7. DEXAMETHASONE [Suspect]
     Active Substance: DEXAMETHASONE
     Dosage: 40 MG, QW
     Route: 065
     Dates: start: 20221026, end: 20221121
  8. DEXAMETHASONE [Suspect]
     Active Substance: DEXAMETHASONE
     Dosage: 40 MG, QW
     Route: 065
     Dates: start: 20221122, end: 20221221
  9. DEXAMETHASONE [Suspect]
     Active Substance: DEXAMETHASONE
     Dosage: 40 MG, QW
     Route: 065
     Dates: start: 20221221, end: 20230117
  10. DEXAMETHASONE [Suspect]
     Active Substance: DEXAMETHASONE
     Dosage: 860 MG
     Route: 065
     Dates: start: 20221025
  11. DEXAMETHASONE [Suspect]
     Active Substance: DEXAMETHASONE
     Indication: Plasma cell myeloma
     Dosage: UNK
     Route: 065
     Dates: start: 20221020
  12. ISATUXIMAB [Suspect]
     Active Substance: ISATUXIMAB
     Dosage: 1800 MG, QW (900 MG, BIW)
     Route: 065
     Dates: start: 20230215, end: 20230307
  13. ISATUXIMAB [Suspect]
     Active Substance: ISATUXIMAB
     Dosage: 1840 MG, QW (920 MG, BIW)
     Route: 065
     Dates: start: 20221122, end: 20221206
  14. ISATUXIMAB [Suspect]
     Active Substance: ISATUXIMAB
     Dosage: 1860 MG, QW (930 MG, BIW)
     Route: 065
     Dates: start: 20221207, end: 20221213
  15. ISATUXIMAB [Suspect]
     Active Substance: ISATUXIMAB
     Dosage: 1880 MG, QW (940 MG, BIW)
     Route: 065
     Dates: start: 20221221, end: 20230110
  16. ISATUXIMAB [Suspect]
     Active Substance: ISATUXIMAB
     Dosage: 1880 MG, QW (940 MG, BIW)
     Route: 065
     Dates: start: 20230117, end: 20230130
  17. ISATUXIMAB [Suspect]
     Active Substance: ISATUXIMAB
     Dosage: 1880 MG, QW (940 MG, BIW)
     Route: 065
     Dates: start: 20230315, end: 20230404
  18. ISATUXIMAB [Suspect]
     Active Substance: ISATUXIMAB
     Dosage: 1900 MG, QW (950 MG, BIW)
     Route: 065
     Dates: start: 20230411
  19. ISATUXIMAB [Suspect]
     Active Substance: ISATUXIMAB
     Dosage: 1900 MG, QW (950 MG, BIW)
     Route: 065
     Dates: start: 20230510, end: 20230531
  20. ISATUXIMAB [Suspect]
     Active Substance: ISATUXIMAB
     Dosage: 2000 MG, QW (1000 MG, BIW)
     Route: 065
     Dates: start: 20230607, end: 20230620
  21. ISATUXIMAB [Suspect]
     Active Substance: ISATUXIMAB
     Dosage: 940 MG, QW
     Route: 065
     Dates: start: 20221026, end: 20221122
  22. ISATUXIMAB [Suspect]
     Active Substance: ISATUXIMAB
     Indication: Plasma cell myeloma
     Dosage: UNK
     Route: 065
     Dates: start: 20221025
  23. POMALIDOMIDE [Suspect]
     Active Substance: POMALIDOMIDE
     Dosage: 3 MG, QD
     Route: 065
     Dates: start: 20221221, end: 20230110
  24. POMALIDOMIDE [Suspect]
     Active Substance: POMALIDOMIDE
     Dosage: 3 MG, QD
     Route: 065
     Dates: start: 20230117, end: 20230130
  25. POMALIDOMIDE [Suspect]
     Active Substance: POMALIDOMIDE
     Dosage: 3 MG, QD
     Route: 065
     Dates: start: 20230215, end: 20230307
  26. POMALIDOMIDE [Suspect]
     Active Substance: POMALIDOMIDE
     Dosage: 3 MG, QD
     Route: 065
     Dates: start: 20230315, end: 20230404
  27. POMALIDOMIDE [Suspect]
     Active Substance: POMALIDOMIDE
     Dosage: 3 MG, QD
     Route: 065
     Dates: start: 20230511, end: 20230531
  28. POMALIDOMIDE [Suspect]
     Active Substance: POMALIDOMIDE
     Dosage: 3 MG, QD
     Route: 065
     Dates: start: 20230607, end: 20230620
  29. POMALIDOMIDE [Suspect]
     Active Substance: POMALIDOMIDE
     Dosage: 3 MG, QD
     Route: 065
     Dates: start: 20230718
  30. POMALIDOMIDE [Suspect]
     Active Substance: POMALIDOMIDE
     Dosage: 3 MG, QD
     Route: 065
     Dates: start: 20230818
  31. POMALIDOMIDE [Suspect]
     Active Substance: POMALIDOMIDE
     Dosage: 3 MG, QD
     Route: 065
     Dates: start: 20230913
  32. POMALIDOMIDE [Suspect]
     Active Substance: POMALIDOMIDE
     Dosage: 4 MG, QD
     Route: 065
     Dates: start: 20221026, end: 20221115
  33. POMALIDOMIDE [Suspect]
     Active Substance: POMALIDOMIDE
     Dosage: 4 MG, QD
     Route: 065
     Dates: start: 20221122, end: 20221212
  34. POMALIDOMIDE [Suspect]
     Active Substance: POMALIDOMIDE
     Dosage: 4 MG, QD
     Route: 065
     Dates: start: 20221025
  35. POMALIDOMIDE [Suspect]
     Active Substance: POMALIDOMIDE
     Indication: Plasma cell myeloma
     Dosage: UNK
     Route: 065
     Dates: start: 20221025, end: 20221108
  36. ACYCLOVIR [Concomitant]
     Active Substance: ACYCLOVIR
     Indication: Prophylaxis
     Dosage: UNK
     Route: 065
     Dates: start: 20210713
  37. AMIODARONE [Concomitant]
     Active Substance: AMIODARONE
     Indication: Adverse event
     Dosage: UNK
     Route: 065
     Dates: start: 20230201, end: 20230630
  38. AMOXICILLIN [Concomitant]
     Active Substance: AMOXICILLIN
     Indication: Adverse event
     Dosage: UNK
     Route: 065
     Dates: start: 20230131, end: 20230206
  39. ATORVASTATIN [Concomitant]
     Active Substance: ATORVASTATIN
     Indication: Prophylaxis
     Dosage: UNK
     Route: 065
     Dates: start: 20220516
  40. BACTRIM [Concomitant]
     Active Substance: SULFAMETHOXAZOLE\TRIMETHOPRIM
     Indication: Prophylaxis
     Dosage: UNK
     Route: 065
     Dates: start: 20211213, end: 20221122
  41. CALCIUM [Concomitant]
     Active Substance: CALCIUM
     Indication: Prophylaxis
     Dosage: UNK
     Route: 065
     Dates: start: 20221122
  42. ENOXAPARIN SODIUM [Concomitant]
     Active Substance: ENOXAPARIN SODIUM
     Indication: Prophylaxis
     Dosage: UNK
     Route: 065
     Dates: start: 20230131, end: 20230204
  43. CHOLECALCIFEROL [Concomitant]
     Active Substance: CHOLECALCIFEROL
     Indication: Prophylaxis
     Dosage: UNK
     Route: 065
     Dates: start: 20221121
  44. DAFALGAN [Concomitant]
     Active Substance: ACETAMINOPHEN
     Indication: Prophylaxis
     Dosage: UNK, EVERY CYCLE
     Route: 065
     Dates: start: 20221221
  45. ELIQUIS [Concomitant]
     Active Substance: APIXABAN
     Indication: Prophylaxis
     Dosage: UNK
     Route: 065
     Dates: start: 20230208
  46. ENOXAPARIN SODIUM [Concomitant]
     Active Substance: ENOXAPARIN SODIUM
     Indication: Prophylaxis
     Dosage: UNK
     Route: 065
  47. FILGRASTIM [Concomitant]
     Active Substance: FILGRASTIM
     Indication: Adverse event
     Dosage: UNK
     Route: 065
     Dates: start: 20230117, end: 20230119
  48. FILGRASTIM [Concomitant]
     Active Substance: FILGRASTIM
     Indication: Adverse event
     Dosage: UNK
     Route: 065
     Dates: start: 20230215, end: 20230217
  49. FILGRASTIM [Concomitant]
     Active Substance: FILGRASTIM
     Indication: Prophylaxis
     Dosage: UNK
     Route: 065
     Dates: start: 20221221, end: 20221223
  50. FOLIC ACID [Concomitant]
     Active Substance: FOLIC ACID
     Indication: Prophylaxis
     Dosage: UNK
     Route: 065
     Dates: start: 20210713, end: 20221221
  51. FOSFOMYCIN [Concomitant]
     Active Substance: FOSFOMYCIN
     Indication: Prophylaxis
     Dosage: UNK
     Route: 065
     Dates: start: 20230620, end: 20230620
  52. INSULIN NOS [Concomitant]
     Active Substance: INSULIN NOS
     Indication: Type 2 diabetes mellitus
     Dosage: UNK (SLOW INSULIN)
     Route: 065
     Dates: start: 20221122, end: 20230315
  53. METFORMIN HYDROCHLORIDE [Concomitant]
     Active Substance: METFORMIN HYDROCHLORIDE
     Indication: Type 2 diabetes mellitus
     Dosage: UNK
     Route: 065
     Dates: start: 20210713, end: 20230315
  54. INSULIN ASPART [Concomitant]
     Active Substance: INSULIN ASPART
     Indication: Type 2 diabetes mellitus
     Dosage: UNK
     Route: 065
     Dates: start: 20230315
  55. OSELTAMIVIR [Concomitant]
     Active Substance: OSELTAMIVIR
     Indication: Adverse event
     Dosage: UNK
     Route: 065
     Dates: start: 20230201, end: 20230208
  56. PANTOPRAZOLE [Concomitant]
     Active Substance: PANTOPRAZOLE
     Indication: Prophylaxis
     Dosage: UNK
     Route: 065
     Dates: start: 20210713
  57. TAMSULOSIN [Concomitant]
     Active Substance: TAMSULOSIN
     Indication: Product used for unknown indication
     Dosage: UNK
     Route: 065
  58. LEVOCETIRIZINE DIHYDROCHLORIDE [Concomitant]
     Active Substance: LEVOCETIRIZINE DIHYDROCHLORIDE
     Indication: Prophylaxis
     Dosage: UNK
     Route: 065
     Dates: start: 20221221
  59. ZOMETA [Concomitant]
     Active Substance: ZOLEDRONIC ACID
     Indication: Prophylaxis
     Dosage: UNK, EVERY CYCLE
     Route: 065
     Dates: start: 20221221

REACTIONS (6)
  - Infection [Recovering/Resolving]
  - Interstitial lung disease [Recovered/Resolved]
  - Neutrophil count decreased [Recovered/Resolved]
  - Neutrophil count decreased [Recovered/Resolved]
  - Neutrophil count decreased [Recovering/Resolving]
  - Pollakiuria [Recovering/Resolving]

NARRATIVE: CASE EVENT DATE: 20221109
